FAERS Safety Report 8300676-2 (Version None)
Quarter: 2012Q2

REPORT INFORMATION
  Report Type: 
  Country: None (occurrence: None)
  Receive Date: 20120417
  Receipt Date: 20120409
  Transmission Date: 20120825
  Serious: Yes (Other)
  Sender: FDA-Public Use
  Company Number: 2012SP015628

PATIENT
  Sex: Male

DRUGS (3)
  1. PEG-INTRON [Suspect]
     Indication: HEPATITIS C
     Dates: start: 20120202
  2. VICTRELIS [Suspect]
     Indication: HEPATITIS C
     Dates: start: 20120302
  3. RIBAVIRIN [Suspect]
     Indication: HEPATITIS C
     Dates: start: 20120202

REACTIONS (11)
  - RASH [None]
  - HYPOAESTHESIA [None]
  - ERYTHEMA [None]
  - THINKING ABNORMAL [None]
  - WEIGHT DECREASED [None]
  - PAIN IN EXTREMITY [None]
  - BLOOD THYROID STIMULATING HORMONE DECREASED [None]
  - NERVOUSNESS [None]
  - POOR QUALITY SLEEP [None]
  - HOT FLUSH [None]
  - WHITE BLOOD CELL COUNT DECREASED [None]
